FAERS Safety Report 20289601 (Version 1)
Quarter: 2022Q1

REPORT INFORMATION
  Report Type: Spontaneous
  Country: CN (occurrence: CN)
  Receive Date: 20220104
  Receipt Date: 20220104
  Transmission Date: 20220423
  Serious: Yes (Other)
  Sender: FDA-Public Use
  Company Number: CN-ASTELLAS-2021US048934

PATIENT
  Age: 24 Year
  Sex: Male

DRUGS (3)
  1. HARNAL [Suspect]
     Active Substance: TAMSULOSIN HYDROCHLORIDE
     Indication: Prostatitis
     Dosage: 0.2 MG, QD
     Route: 048
     Dates: start: 2019
  2. HARNAL [Suspect]
     Active Substance: TAMSULOSIN HYDROCHLORIDE
     Dosage: 0.2 MG, BID
     Route: 048
  3. LORAZEPAM [Concomitant]
     Active Substance: LORAZEPAM
     Indication: Insomnia
     Dosage: UNK
     Dates: start: 2020

REACTIONS (6)
  - Erectile dysfunction [Not Recovered/Not Resolved]
  - Urine output decreased [Not Recovered/Not Resolved]
  - Dizziness [Not Recovered/Not Resolved]
  - Off label use [Unknown]
  - Prescription drug used without a prescription [Unknown]
  - Overdose [Unknown]

NARRATIVE: CASE EVENT DATE: 20190101
